FAERS Safety Report 7474685-X (Version None)
Quarter: 2011Q2

REPORT INFORMATION
  Report Type: 
  Country: None (occurrence: None)
  Receive Date: 20110509
  Receipt Date: 20110509
  Transmission Date: 20111010
  Serious: Yes (Death)
  Sender: FDA-Public Use
  Company Number: None

PATIENT
  Sex: Female
  Weight: 61.4 kg

DRUGS (1)
  1. PACLITAXEL [Suspect]
     Dosage: 230MG
     Dates: end: 20050113

REACTIONS (5)
  - MYELODYSPLASTIC SYNDROME TRANSFORMATION [None]
  - CARDIAC FAILURE CONGESTIVE [None]
  - ACUTE MYELOID LEUKAEMIA [None]
  - TREATMENT RELATED SECONDARY MALIGNANCY [None]
  - WEIGHT DECREASED [None]
